FAERS Safety Report 7995158-1 (Version None)
Quarter: 2011Q4

REPORT INFORMATION
  Report Type: 
  Country: None (occurrence: None)
  Receive Date: 20111220
  Receipt Date: 20111209
  Transmission Date: 20120403
  Serious: Yes (Other)
  Sender: FDA-Public Use
  Company Number: JP-GLAXOSMITHKLINE-B0766610A

PATIENT
  Sex: Female

DRUGS (10)
  1. VALTREX [Suspect]
     Indication: HERPES ZOSTER
     Dosage: 1000MG PER DAY
     Route: 048
     Dates: start: 20111117, end: 20111118
  2. SELBEX [Concomitant]
     Indication: PROPHYLAXIS AGAINST GASTROINTESTINAL ULCER
     Dosage: 150MG PER DAY
     Route: 048
     Dates: end: 20111128
  3. FOIPAN [Concomitant]
     Indication: PANCREATITIS CHRONIC
     Dosage: 300MG PER DAY
     Route: 048
     Dates: end: 20111128
  4. FAMOTIDINE [Concomitant]
     Indication: PROPHYLAXIS AGAINST GASTROINTESTINAL ULCER
     Dosage: 20MG PER DAY
     Route: 048
  5. VALTREX [Suspect]
     Dosage: 3000MG PER DAY
     Route: 048
     Dates: start: 20111119, end: 20111121
  6. NIACIN [Concomitant]
     Indication: STOMATITIS
     Dosage: 150MG PER DAY
     Route: 048
     Dates: end: 20111128
  7. URSO 250 [Concomitant]
     Indication: ALCOHOLIC LIVER DISEASE
     Dosage: 150MG PER DAY
     Route: 048
     Dates: end: 20111128
  8. UNKNOWN DRUG [Concomitant]
     Indication: DEMENTIA
     Dosage: 5MG PER DAY
     Route: 048
  9. PANTOSIN [Concomitant]
     Indication: PANTOTHENIC ACID DEFICIENCY
     Dosage: 300MG PER DAY
     Route: 048
     Dates: end: 20111128
  10. MAGNESIUM SULFATE [Concomitant]
     Indication: CONSTIPATION
     Dosage: 990MG PER DAY
     Route: 048
     Dates: end: 20111128

REACTIONS (11)
  - BLOOD LACTATE DEHYDROGENASE INCREASED [None]
  - CONDITION AGGRAVATED [None]
  - SOMNOLENCE [None]
  - LYMPHOCYTE PERCENTAGE DECREASED [None]
  - RED BLOOD CELL SEDIMENTATION RATE INCREASED [None]
  - CHEST X-RAY ABNORMAL [None]
  - C-REACTIVE PROTEIN INCREASED [None]
  - INTERSTITIAL LUNG DISEASE [None]
  - PYREXIA [None]
  - NEUTROPHIL PERCENTAGE INCREASED [None]
  - CELL MARKER INCREASED [None]
